FAERS Safety Report 13412971 (Version 2)
Quarter: 2017Q2

REPORT INFORMATION
  Report Type: Report from Study
  Country: GB (occurrence: GB)
  Receive Date: 20170407
  Receipt Date: 20170428
  Transmission Date: 20170830
  Serious: Yes (Hospitalization)
  Sender: FDA-Public Use
  Company Number: GB-BRISTOL-MYERS SQUIBB COMPANY-BMS-2017-029183

PATIENT
  Age: 44 Year
  Sex: Female

DRUGS (6)
  1. METRONIDAZOLE. [Concomitant]
     Active Substance: METRONIDAZOLE
     Indication: ABDOMINAL INFECTION
     Dosage: 400 MG, UNK
     Route: 048
     Dates: start: 20161221, end: 20161230
  2. COCODAMOL [Concomitant]
     Active Substance: ACETAMINOPHEN\CODEINE PHOSPHATE
     Indication: PAIN
     Dosage: 4 G, UNK
     Route: 048
     Dates: start: 20161215, end: 20161229
  3. NIVOLUMAB [Suspect]
     Active Substance: NIVOLUMAB
     Indication: MALIGNANT MELANOMA
     Dosage: 1 DF=105, Q3WK
     Route: 042
     Dates: start: 20161230, end: 20170210
  4. CO-AMOXICLAV                       /00756801/ [Concomitant]
     Active Substance: AMOXICILLIN\CLAVULANIC ACID
     Indication: ABDOMINAL INFECTION
     Dosage: 1875 MG, UNK
     Route: 048
     Dates: start: 20161221, end: 20161230
  5. IPILIMUMAB [Suspect]
     Active Substance: IPILIMUMAB
     Indication: MALIGNANT MELANOMA
     Dosage: 1 DF=315, Q3WK
     Route: 065
     Dates: start: 20161230, end: 20170210
  6. CORSODYL [Concomitant]
     Active Substance: CHLORHEXIDINE GLUCONATE
     Indication: GINGIVAL BLEEDING
     Dosage: 40 ML, UNK
     Route: 048
     Dates: start: 20161231

REACTIONS (1)
  - Enteritis [Recovered/Resolved]

NARRATIVE: CASE EVENT DATE: 20170105
